FAERS Safety Report 7648530-3 (Version None)
Quarter: 2011Q3

REPORT INFORMATION
  Report Type: 
  Country: None (occurrence: None)
  Receive Date: 20110801
  Receipt Date: 20110727
  Transmission Date: 20111222
  Serious: Yes (Hospitalization, Other)
  Sender: FDA-Public Use
  Company Number: US-PFIZER INC-2011087684

PATIENT
  Sex: Male

DRUGS (11)
  1. CHANTIX [Suspect]
     Indication: SMOKING CESSATION THERAPY
     Dosage: STARTER PACK
     Dates: start: 20090113, end: 20090213
  2. SERTRALINE [Concomitant]
     Indication: ANXIETY
  3. ALPRAZOLAM [Concomitant]
     Indication: INSOMNIA
  4. BETAMETHASONE [Concomitant]
     Indication: RASH
     Dosage: UNK
     Dates: start: 20060101
  5. CITALOPRAM [Concomitant]
     Indication: DEPRESSION
     Dosage: UNK
     Dates: start: 20060101, end: 20090101
  6. SERTRALINE [Concomitant]
     Indication: DEPRESSION
     Dosage: UNK
     Dates: start: 20070101, end: 20090101
  7. LORAZEPAM [Concomitant]
     Indication: INSOMNIA
  8. ALPRAZOLAM [Concomitant]
     Indication: ANXIETY
     Dosage: UNK
     Dates: start: 20060101
  9. ZOLPIDEM [Concomitant]
     Indication: INSOMNIA
     Dosage: UNK
     Dates: start: 20070101, end: 20090101
  10. LORAZEPAM [Concomitant]
     Indication: ANXIETY
     Dosage: UNK
     Dates: start: 20080101, end: 20090101
  11. METHADONE [Concomitant]
     Indication: PAIN
     Dosage: UNK
     Dates: start: 20060101

REACTIONS (14)
  - LOSS OF CONSCIOUSNESS [None]
  - NECK INJURY [None]
  - ANXIETY [None]
  - HEAD INJURY [None]
  - COGNITIVE DISORDER [None]
  - INSOMNIA [None]
  - DELIRIUM [None]
  - BACK INJURY [None]
  - ROAD TRAFFIC ACCIDENT [None]
  - AGGRESSION [None]
  - MENTAL STATUS CHANGES [None]
  - SUICIDAL IDEATION [None]
  - PSYCHOTIC DISORDER [None]
  - DEPRESSION [None]
